FAERS Safety Report 4427118-1 (Version None)
Quarter: 2004Q3

REPORT INFORMATION
  Report Type: 
  Country: None (occurrence: None)
  Receive Date: 20040726
  Receipt Date: 20040503
  Transmission Date: 20050211
  Serious: No
  Sender: FDA-Public Use
  Company Number: USA040465248

PATIENT
  Age: 84 Year
  Sex: Female

DRUGS (5)
  1. FORTEO [Suspect]
     Indication: OSTEOPOROSIS
     Dates: start: 20030201, end: 20040528
  2. FORTEO [Suspect]
     Indication: RHEUMATOID ARTHRITIS
     Dates: start: 20030201, end: 20040528
  3. BLOOD PRESSURE MEDICATION [Concomitant]
  4. CELEBREX [Concomitant]
  5. FLUOXETINE [Concomitant]

REACTIONS (9)
  - ABDOMINAL PAIN UPPER [None]
  - ACCIDENTAL OVERDOSE [None]
  - BLOOD PRESSURE INCREASED [None]
  - DIARRHOEA [None]
  - FEELING ABNORMAL [None]
  - INCREASED APPETITE [None]
  - INJECTION SITE RASH [None]
  - NAUSEA [None]
  - SOMNOLENCE [None]
